FAERS Safety Report 17802921 (Version 2)
Quarter: 2020Q2

REPORT INFORMATION
  Report Type: Not Available
  Country: US (occurrence: US)
  Receive Date: 20200519
  Receipt Date: 20200617
  Transmission Date: 20200714
  Serious: Yes (Hospitalization)
  Sender: FDA-Public Use
  Company Number: US-NEUROCRINE BIOSCIENCES INC.-2020NBI01482

PATIENT
  Age: 68 Year
  Sex: Female

DRUGS (13)
  1. LIORESAL [Concomitant]
     Active Substance: BACLOFEN
     Route: 048
  2. NEURONTIN [Concomitant]
     Active Substance: GABAPENTIN
     Route: 048
  3. BENADRYL ALLERGY [Concomitant]
     Active Substance: DIPHENHYDRAMINE HYDROCHLORIDE
     Route: 048
  4. COZAAR [Concomitant]
     Active Substance: LOSARTAN POTASSIUM
     Route: 048
  5. DESYREL [Concomitant]
     Active Substance: TRAZODONE HYDROCHLORIDE
     Dosage: NIGHTLY
     Route: 048
  6. CYMBALTA [Concomitant]
     Active Substance: DULOXETINE HYDROCHLORIDE
     Route: 048
  7. INGREZZA [Suspect]
     Active Substance: VALBENAZINE
     Route: 048
     Dates: start: 202005
  8. LIPITOR [Concomitant]
     Active Substance: ATORVASTATIN CALCIUM
     Dosage: 10MG BY MOUTH DAILY. 1/2 TABLET AT BEDTIME
     Route: 048
  9. KLONOPIN [Concomitant]
     Active Substance: CLONAZEPAM
     Route: 048
  10. GLUCOPHAGE [Concomitant]
     Active Substance: METFORMIN HYDROCHLORIDE
     Dosage: WITH MEALS
     Route: 048
  11. INGREZZA [Suspect]
     Active Substance: VALBENAZINE
     Indication: TARDIVE DYSKINESIA
     Route: 048
     Dates: start: 20200116, end: 20200220
  12. DILTIAZEM CD [Concomitant]
     Active Substance: DILTIAZEM
     Route: 048
  13. ATROPINE. [Concomitant]
     Active Substance: ATROPINE
     Indication: DROOLING
     Dosage: 2 DROPS UNDER THE TONGUE UP TO 3 TIMES PER DAY AS NEEDED
     Route: 048

REACTIONS (3)
  - Tardive dyskinesia [Recovered/Resolved with Sequelae]
  - Hyperglycaemia [Recovered/Resolved with Sequelae]
  - Blood pressure systolic increased [Recovered/Resolved with Sequelae]

NARRATIVE: CASE EVENT DATE: 202002
